FAERS Safety Report 5479317-8 (Version None)
Quarter: 2007Q4

REPORT INFORMATION
  Report Type: 
  Country: None (occurrence: None)
  Receive Date: 20071008
  Receipt Date: 20071003
  Transmission Date: 20080405
  Serious: Yes (Other)
  Sender: FDA-Public Use
  Company Number: US-BAYER-200712819BCC

PATIENT
  Sex: Female
  Weight: 64 kg

DRUGS (1)
  1. LEMON-LIME ALKA-SELTZER [Suspect]
     Indication: STOMACH DISCOMFORT
     Route: 048
     Dates: start: 20070201

REACTIONS (1)
  - ABORTION SPONTANEOUS [None]
